FAERS Safety Report 9521314 (Version 2)
Quarter: 2013Q3

REPORT INFORMATION
  Report Type: Spontaneous
  Country: US (occurrence: None)
  Receive Date: 20130911
  Receipt Date: 20130912
  Transmission Date: 20140515
  Serious: Yes (Hospitalization, Other)
  Sender: FDA-Public Use
  Company Number: CPI-4904

PATIENT
  Age: 42 Year
  Sex: Female

DRUGS (1)
  1. N-ACETYLCYSTEINE [Suspect]
     Indication: TOXICITY TO VARIOUS AGENTS
     Route: 048

REACTIONS (9)
  - Mental status changes [None]
  - Encephalopathy [None]
  - Asterixis [None]
  - Tremor [None]
  - Palpitations [None]
  - Dysphagia [None]
  - Weight decreased [None]
  - Coagulopathy [None]
  - Hepatic necrosis [None]
